FAERS Safety Report 14358467 (Version 3)
Quarter: 2019Q2

REPORT INFORMATION
  Report Type: Spontaneous
  Country: US (occurrence: US)
  Receive Date: 20180105
  Receipt Date: 20190611
  Transmission Date: 20190711
  Serious: Yes (Other)
  Sender: FDA-Public Use
  Company Number: US-SA-2017SA227865

PATIENT
  Age: 68 Year
  Sex: Female

DRUGS (4)
  1. DUPIXENT [Suspect]
     Active Substance: DUPILUMAB
     Indication: DERMATITIS ATOPIC
     Dosage: 300 MG,QOW
     Route: 058
     Dates: start: 201708
  2. DUPIXENT [Suspect]
     Active Substance: DUPILUMAB
     Indication: PSORIASIS
  3. DUPIXENT [Suspect]
     Active Substance: DUPILUMAB
     Indication: ILL-DEFINED DISORDER
  4. CYCLOSPORINE. [Concomitant]
     Active Substance: CYCLOSPORINE
     Dosage: UNK UNK,UNK

REACTIONS (16)
  - Ocular hyperaemia [Recovering/Resolving]
  - Eye pruritus [Recovering/Resolving]
  - Respiratory disorder [Unknown]
  - Paranasal sinus hypersecretion [Unknown]
  - Oral herpes [Unknown]
  - Cough [Unknown]
  - Product use issue [Unknown]
  - Erythema [Unknown]
  - Swelling of eyelid [Recovering/Resolving]
  - Eye irritation [Recovering/Resolving]
  - Lacrimation increased [Recovering/Resolving]
  - Product use in unapproved indication [Unknown]
  - Cataract [Unknown]
  - Eyelid margin crusting [Recovering/Resolving]
  - Erythema of eyelid [Recovering/Resolving]
  - Skin irritation [Unknown]

NARRATIVE: CASE EVENT DATE: 2017
